FAERS Safety Report 4616900-3 (Version None)
Quarter: 2005Q1

REPORT INFORMATION
  Report Type: 
  Country: None (occurrence: None)
  Receive Date: 20050321
  Receipt Date: 20050308
  Transmission Date: 20050727
  Serious: Yes (Hospitalization, Other)
  Sender: FDA-Public Use
  Company Number: HQWYE799603MAR05

PATIENT
  Age: 53 Year
  Sex: Male

DRUGS (4)
  1. ADVIL [Suspect]
     Indication: ANGINA PECTORIS
     Dosage: 200 MG 3 TABLETS/DAILY
     Route: 048
     Dates: start: 20050115, end: 20050121
  2. DOLIPRANE (PARACETAMOL) [Concomitant]
  3. XYZALL (LEVOCETIRIZINE) [Concomitant]
  4. ZOCOR [Concomitant]

REACTIONS (6)
  - APHTHOUS STOMATITIS [None]
  - ARTERIAL RUPTURE [None]
  - EPISTAXIS [None]
  - GINGIVITIS [None]
  - GLOSSITIS [None]
  - SIMILAR REACTION ON PREVIOUS EXPOSURE TO DRUG [None]
